FAERS Safety Report 22340891 (Version 1)
Quarter: 2023Q2

REPORT INFORMATION
  Report Type: Spontaneous
  Country: DE (occurrence: DE)
  Receive Date: 20230518
  Receipt Date: 20230518
  Transmission Date: 20230721
  Serious: Yes (Death, Other)
  Sender: FDA-Public Use
  Company Number: DE-MALLINCKRODT-MNK202301825

PATIENT
  Age: 26 Year
  Sex: Female

DRUGS (10)
  1. OFIRMEV [Suspect]
     Active Substance: ACETAMINOPHEN
     Indication: Product used for unknown indication
     Route: 042
     Dates: start: 20210806
  2. DEXAMETHASONE [Suspect]
     Active Substance: DEXAMETHASONE
     Indication: Product used for unknown indication
     Route: 042
     Dates: start: 20210806
  3. CARBOPLATIN [Suspect]
     Active Substance: CARBOPLATIN
     Indication: Triple negative breast cancer
     Dosage: UNK (4 CYCLES WITHIN 21 DAYS (DAY 1, 8, 15)) (INFUSION)
     Dates: start: 20210305
  4. CARBOPLATIN [Suspect]
     Active Substance: CARBOPLATIN
     Dosage: UNKNOWN
  5. PACLITAXEL [Suspect]
     Active Substance: PACLITAXEL
     Indication: Triple negative breast cancer
     Dosage: UNKNOWN
  6. ATEZOLIZUMAB [Suspect]
     Active Substance: ATEZOLIZUMAB
     Indication: Triple negative breast cancer
     Dosage: UNKNOWN
     Dates: start: 2021, end: 2021
  7. CIMETIDINE [Suspect]
     Active Substance: CIMETIDINE
     Indication: Product used for unknown indication
     Route: 042
     Dates: start: 20210806
  8. FILGRASTIM [Suspect]
     Active Substance: FILGRASTIM
     Indication: Bone marrow disorder
     Dosage: UNKNOWN
  9. DIMETHINDENE [Suspect]
     Active Substance: DIMETHINDENE
     Indication: Product used for unknown indication
     Route: 042
     Dates: start: 20210806
  10. PACLITAXEL [Suspect]
     Active Substance: PACLITAXEL
     Indication: Triple negative breast cancer
     Dosage: UNK (4 CYCLES WITHIN 21 DAYS (DAY 1, 8, 15)) (INFUSION)
     Dates: start: 20210305, end: 2021

REACTIONS (1)
  - Death [Fatal]
